FAERS Safety Report 15583508 (Version 1)
Quarter: 2018Q4

REPORT INFORMATION
  Report Type: Spontaneous
  Country: GB (occurrence: GB)
  Receive Date: 20181104
  Receipt Date: 20181104
  Transmission Date: 20190205
  Serious: Yes (Other)
  Sender: FDA-Public Use
  Company Number: GB-UCBSA-2018047908

PATIENT
  Age: 48 Year
  Sex: Female

DRUGS (2)
  1. TEGRETOL [Suspect]
     Active Substance: CARBAMAZEPINE
     Indication: EPILEPSY
     Dosage: 400 MG, 2X/DAY (BID)
     Route: 048
  2. LEVETIRACETAM. [Suspect]
     Active Substance: LEVETIRACETAM
     Indication: EPILEPSY
     Dosage: 250 MG, 2X/DAY (BID)
     Dates: start: 2004

REACTIONS (10)
  - Tremor [Unknown]
  - Tonic convulsion [Unknown]
  - Aggression [Unknown]
  - Abnormal behaviour [Unknown]
  - Seizure [Unknown]
  - Loss of consciousness [Unknown]
  - Panic attack [Unknown]
  - Stress [Unknown]
  - Palpitations [Unknown]
  - Anxiety [Unknown]
